FAERS Safety Report 8523103 (Version 2)
Quarter: 2015Q2

REPORT INFORMATION
  Report Type: Spontaneous
  Country: US (occurrence: US)
  Receive Date: 20120420
  Receipt Date: 20150601
  Transmission Date: 20150821
  Serious: Yes (Other)
  Sender: FDA-Public Use
  Company Number: US-BAYER-2012-037965

PATIENT
  Age: 27 Year
  Sex: Female

DRUGS (4)
  1. OCELLA [Suspect]
     Active Substance: DROSPIRENONE\ETHINYL ESTRADIOL
     Dosage: UNK
     Dates: start: 2006, end: 200608
  2. GIANVI [Suspect]
     Active Substance: DROSPIRENONE\ETHINYL ESTRADIOL
     Dosage: UNK
     Dates: start: 2006, end: 200608
  3. YASMIN [Suspect]
     Active Substance: DROSPIRENONE\ETHINYL ESTRADIOL
     Dosage: UNK
     Dates: start: 2006, end: 200608
  4. YAZ [Suspect]
     Active Substance: DROSPIRENONE\ETHINYL ESTRADIOL
     Dosage: UNK
     Dates: start: 2006, end: 200608

REACTIONS (8)
  - Deep vein thrombosis [None]
  - Injury [None]
  - Pulmonary embolism [None]
  - Depression [None]
  - Fear of death [None]
  - Pain [None]
  - Emotional distress [None]
  - Nervousness [None]

NARRATIVE: CASE EVENT DATE: 200608
